FAERS Safety Report 9324948 (Version 2)
Quarter: 2013Q3

REPORT INFORMATION
  Report Type: Report from Study
  Country: IT (occurrence: IT)
  Receive Date: 20130603
  Receipt Date: 20130710
  Transmission Date: 20140515
  Serious: Yes (Hospitalization, Other)
  Sender: FDA-Public Use
  Company Number: IT-PFIZER INC-2013164042

PATIENT
  Age: 74 Year
  Sex: Male

DRUGS (13)
  1. UNASYN [Suspect]
     Indication: ERYSIPELAS
     Dosage: 3 DF, DAILY
     Route: 042
     Dates: start: 20130319, end: 20130322
  2. TRIATEC [Suspect]
     Indication: HYPERTENSIVE CARDIOMYOPATHY
     Dosage: 5 MG, DAILY
     Route: 048
     Dates: start: 20130319, end: 20130322
  3. LASIX [Suspect]
     Indication: HYPERTENSIVE HEART DISEASE
     Dosage: 80 MG, DAILY
     Route: 042
     Dates: start: 20130319, end: 20130322
  4. LASIX [Suspect]
     Indication: HYPERTENSIVE CARDIOMYOPATHY
  5. LANSOPRAZOLE [Concomitant]
     Dosage: UNK
  6. NORVASC [Concomitant]
     Dosage: UNK
  7. HUMALOG [Concomitant]
     Dosage: UNK
  8. CALCIPARINA [Concomitant]
     Dosage: UNK
  9. LATTULAC [Concomitant]
     Dosage: UNK
  10. LANTUS [Concomitant]
     Dosage: UNK
  11. ZYLORIC [Concomitant]
     Dosage: 300 MG, UNK
     Route: 048
  12. CARDIOASPIRIN [Concomitant]
     Dosage: UNK
  13. AMOXICILLIN TRIHYDRATE/CLAVULANIC ACID [Concomitant]
     Dosage: UNK

REACTIONS (1)
  - Renal failure [Not Recovered/Not Resolved]
